FAERS Safety Report 4975453-0 (Version None)
Quarter: 2006Q2

REPORT INFORMATION
  Report Type: 
  Country: None (occurrence: None)
  Receive Date: 20060418
  Receipt Date: 20060308
  Transmission Date: 20061013
  Serious: Yes (Hospitalization)
  Sender: FDA-Public Use
  Company Number: KR-AVENTIS-200612254GDDC

PATIENT
  Age: 72 Year
  Sex: Male

DRUGS (5)
  1. LANTUS [Suspect]
     Indication: DIABETES MELLITUS
     Route: 058
     Dates: start: 20060202
  2. LANTUS [Suspect]
     Dates: start: 20060203, end: 20060214
  3. LANTUS [Suspect]
     Dates: start: 20060215
  4. METFORMIN HYDROCHLORIDE [Concomitant]
     Indication: DIABETES MELLITUS
     Route: 048
     Dates: start: 20060202, end: 20060202
  5. METFORMIN HYDROCHLORIDE [Concomitant]
     Route: 048
     Dates: start: 20060215

REACTIONS (12)
  - ATRIAL FIBRILLATION [None]
  - BRAIN DAMAGE [None]
  - CEREBRAL ARTERY EMBOLISM [None]
  - CEREBRAL INFARCTION [None]
  - CHEST X-RAY ABNORMAL [None]
  - HYPOGLYCAEMIC COMA [None]
  - HYPOGLYCAEMIC ENCEPHALOPATHY [None]
  - PNEUMONIA ASPIRATION [None]
  - PRODUCTIVE COUGH [None]
  - PYREXIA [None]
  - SOMNOLENCE [None]
  - STUPOR [None]
